FAERS Safety Report 23063610 (Version 1)
Quarter: 2023Q4

REPORT INFORMATION
  Report Type: Other
  Country: CN (occurrence: CN)
  Receive Date: 20231013
  Receipt Date: 20231013
  Transmission Date: 20240110
  Serious: Yes (Other)
  Sender: FDA-Public Use
  Company Number: CN-GE HEALTHCARE-2023CSU009002

PATIENT
  Age: 64 Year
  Sex: Female
  Weight: 70 kg

DRUGS (6)
  1. OMNIPAQUE [Suspect]
     Active Substance: IOHEXOL
     Indication: Angiocardiogram
     Dosage: 20 ML, SINGLE
     Route: 013
     Dates: start: 20230928, end: 20230928
  2. OMNIPAQUE [Suspect]
     Active Substance: IOHEXOL
     Indication: Angina unstable
  3. OMNIPAQUE [Suspect]
     Active Substance: IOHEXOL
     Indication: Arteriosclerosis
  4. LIDOCAINE [Concomitant]
     Active Substance: LIDOCAINE
     Indication: Local anaesthesia
     Dosage: UNKNOWN DOSAGE REGIMEN
     Route: 065
     Dates: start: 20230928, end: 20230928
  5. HEPARIN [Concomitant]
     Active Substance: HEPARIN SODIUM
     Indication: Angiocardiogram
     Dosage: 3000 IU, SINGLE
     Route: 065
     Dates: start: 20230928, end: 20230928
  6. NITROGLYCERIN [Concomitant]
     Active Substance: NITROGLYCERIN
     Indication: Angiocardiogram
     Dosage: 200 ?G, SINGLE
     Route: 065
     Dates: start: 20230928, end: 20230928

REACTIONS (6)
  - Breath sounds abnormal [Unknown]
  - Blood pressure decreased [Recovering/Resolving]
  - Palpitations [Recovering/Resolving]
  - Chest discomfort [Recovering/Resolving]
  - Flushing [Unknown]
  - Hyperhidrosis [Recovered/Resolved]

NARRATIVE: CASE EVENT DATE: 20230928
